FAERS Safety Report 7372230-0 (Version None)
Quarter: 2011Q1

REPORT INFORMATION
  Report Type: 
  Country: None (occurrence: None)
  Receive Date: 20110324
  Receipt Date: 20110318
  Transmission Date: 20110831
  Serious: Yes (Other)
  Sender: FDA-Public Use
  Company Number: US-SANOFI-AVENTIS-2011SA017169

PATIENT
  Age: 76 Year
  Sex: Female

DRUGS (4)
  1. SOLOSTAR [Suspect]
     Indication: TYPE 2 DIABETES MELLITUS
  2. LISINOPRIL [Concomitant]
     Indication: BLOOD PRESSURE
  3. LANTUS [Suspect]
     Indication: TYPE 2 DIABETES MELLITUS
     Dosage: DOSE:18 UNIT(S)
     Route: 058
  4. PREDNISONE [Suspect]
     Route: 065
     Dates: start: 20110101

REACTIONS (5)
  - JOINT INJURY [None]
  - DIZZINESS [None]
  - FALL [None]
  - BLOOD GLUCOSE INCREASED [None]
  - COLON OPERATION [None]
